FAERS Safety Report 12624417 (Version 2)
Quarter: 2016Q3

REPORT INFORMATION
  Report Type: Spontaneous
  Country: AU (occurrence: AU)
  Receive Date: 20160805
  Receipt Date: 20160812
  Transmission Date: 20161109
  Serious: Yes (Hospitalization, Other)
  Sender: FDA-Public Use
  Company Number: AU-APOTEX-2016AP010177

PATIENT
  Age: 53 Year
  Sex: Male

DRUGS (10)
  1. APIXABAN [Suspect]
     Active Substance: APIXABAN
     Indication: INTENTIONAL OVERDOSE
     Dosage: 40 X 5 MG (200 MG)
     Route: 065
  2. APO-BISOPROLOL [Suspect]
     Active Substance: BISOPROLOL FUMARATE
     Indication: INTENTIONAL OVERDOSE
     Dosage: 42 X 2.5MG (105 MG)
     Route: 065
  3. ACETAMINOPHEN. [Suspect]
     Active Substance: ACETAMINOPHEN
     Indication: OVERDOSE
     Dosage: UNK
     Route: 065
  4. RAMIPRIL. [Suspect]
     Active Substance: RAMIPRIL
     Indication: INTENTIONAL OVERDOSE
     Dosage: 28 X 1.25MG (35 MG)
     Route: 065
  5. APIXABAN [Suspect]
     Active Substance: APIXABAN
     Indication: ATRIAL FIBRILLATION
     Dosage: UNK
     Route: 065
  6. TERRY WHITE COLD + FLU PE [Suspect]
     Active Substance: ACETAMINOPHEN\CODEINE\PHENYLEPHRINE
     Indication: INTENTIONAL OVERDOSE
     Dosage: 500MG OF PARACETAMOL/ 9.5MG OF CODEINE/5MG OF PHENYLEPHRINE; TOTAL 4 UNITS
     Route: 065
  7. ACETAMINOPHEN. [Suspect]
     Active Substance: ACETAMINOPHEN
     Dosage: UNK
     Route: 065
  8. COLCHICINE. [Suspect]
     Active Substance: COLCHICINE
     Indication: INTENTIONAL OVERDOSE
     Dosage: 12 X 0.5MG (6 MG)
     Route: 065
  9. APO-ATORVASTATIN [Suspect]
     Active Substance: ATORVASTATIN
     Indication: INTENTIONAL OVERDOSE
     Dosage: 280 MG, SINGLE
     Route: 065
  10. MAGNESIUM [Suspect]
     Active Substance: MAGNESIUM
     Indication: OVERDOSE
     Dosage: 10 X 3.74MG (37.4 MG)
     Route: 065

REACTIONS (8)
  - Poisoning deliberate [Unknown]
  - Activated partial thromboplastin time prolonged [Unknown]
  - International normalised ratio increased [Unknown]
  - Intentional overdose [Unknown]
  - Hypotension [Unknown]
  - Heart rate irregular [Unknown]
  - Overdose [Unknown]
  - Haemorrhage [Recovered/Resolved]
